FAERS Safety Report 13345065 (Version 1)
Quarter: 2017Q1

REPORT INFORMATION
  Report Type: Spontaneous
  Country: CA (occurrence: CA)
  Receive Date: 20170317
  Receipt Date: 20170317
  Transmission Date: 20170428
  Serious: Yes (Other)
  Sender: FDA-Public Use
  Company Number: CA-ROCHE-1905527

PATIENT
  Sex: Female

DRUGS (14)
  1. ABATACEPT [Suspect]
     Active Substance: ABATACEPT
     Indication: PRODUCT USED FOR UNKNOWN INDICATION
     Dosage: ONCE
     Route: 065
     Dates: start: 201608, end: 201702
  2. TRIAMTERENE. [Concomitant]
     Active Substance: TRIAMTERENE
     Route: 048
  3. TOCILIZUMAB [Suspect]
     Active Substance: TOCILIZUMAB
     Indication: PRODUCT USED FOR UNKNOWN INDICATION
     Route: 065
     Dates: end: 20150213
  4. TIAZAC (CANADA) [Concomitant]
     Route: 048
  5. FOLIC ACID. [Concomitant]
     Active Substance: FOLIC ACID
     Route: 048
  6. SIMVASTATIN. [Concomitant]
     Active Substance: SIMVASTATIN
     Route: 048
  7. ERGOCALCIFEROL. [Concomitant]
     Active Substance: ERGOCALCIFEROL
     Dosage: DOSE: 2000 UNITS
     Route: 048
  8. PANTOPRAZOLE [Concomitant]
     Active Substance: PANTOPRAZOLE SODIUM
     Route: 048
  9. MYFORTIC [Concomitant]
     Active Substance: MYCOPHENOLATE SODIUM
     Indication: POLYARTERITIS NODOSA
     Route: 048
  10. ORENCIA [Concomitant]
     Active Substance: ABATACEPT
  11. MIRTAZAPINE. [Concomitant]
     Active Substance: MIRTAZAPINE
     Dosage: AT BED TIME
     Route: 048
  12. COVERSYL [Concomitant]
     Active Substance: PERINDOPRIL
     Route: 048
  13. RITUXIMAB [Suspect]
     Active Substance: RITUXIMAB
     Indication: PRODUCT USED FOR UNKNOWN INDICATION
     Route: 065
     Dates: start: 201508, end: 20160308
  14. PROLIA [Concomitant]
     Active Substance: DENOSUMAB
     Dosage: 60 MG/ML,, ROUTE OF ADMIN: INJ.
     Route: 065

REACTIONS (14)
  - Pulmonary oedema [Unknown]
  - Vaginal lesion [Unknown]
  - Myocardial infarction [Unknown]
  - Mouth ulceration [Unknown]
  - Systemic lupus erythematosus [Unknown]
  - Arthralgia [Unknown]
  - Cardiac failure congestive [Unknown]
  - Electrocardiogram repolarisation abnormality [Unknown]
  - Drug ineffective [Unknown]
  - Influenza like illness [Unknown]
  - Chest pain [Unknown]
  - Rheumatoid arthritis [Unknown]
  - Swelling [Unknown]
  - Dyspnoea [Unknown]
